FAERS Safety Report 6959609-3 (Version None)
Quarter: 2010Q3

REPORT INFORMATION
  Report Type: 
  Country: None (occurrence: None)
  Receive Date: 20100830
  Receipt Date: 20100812
  Transmission Date: 20110219
  Serious: Yes (Other)
  Sender: FDA-Public Use
  Company Number: ACO_01528_2010

PATIENT
  Age: 59 Year
  Sex: Female

DRUGS (11)
  1. AMPYRA [Suspect]
     Indication: GAIT DISTURBANCE
     Dosage: (10 MG BID ORAL)
     Route: 048
     Dates: start: 20100624, end: 20100722
  2. HUMALOG [Concomitant]
  3. LANTUS /01483501/ [Concomitant]
  4. BACLOFEN [Concomitant]
  5. GABAPENTIN [Concomitant]
  6. LEXAPRO [Concomitant]
  7. ZANTAC [Concomitant]
  8. SIMVASTATIN [Concomitant]
  9. MICARDIS [Concomitant]
  10. CALCIUM [Concomitant]
  11. ASPIRIN [Concomitant]

REACTIONS (2)
  - CHOKING [None]
  - COUGH [None]
